FAERS Safety Report 5843732-0 (Version None)
Quarter: 2008Q3

REPORT INFORMATION
  Report Type: 
  Country: None (occurrence: None)
  Receive Date: 20080813
  Receipt Date: 20080513
  Transmission Date: 20090109
  Serious: No
  Sender: FDA-Public Use
  Company Number: US-BRISTOL-MYERS SQUIBB COMPANY-14189864

PATIENT
  Age: 58 Year
  Sex: Female

DRUGS (3)
  1. IXEMPRA KIT [Suspect]
     Dosage: SINCE 31DEC2007 AND 15APR2008.
     Dates: start: 20071231
  2. XELODA [Concomitant]
  3. OXYCONTIN [Concomitant]

REACTIONS (6)
  - ERYTHEMA [None]
  - NAIL DISORDER [None]
  - OEDEMA PERIPHERAL [None]
  - ONYCHOLYSIS [None]
  - ONYCHOMADESIS [None]
  - PAIN IN EXTREMITY [None]
